FAERS Safety Report 23357537 (Version 1)
Quarter: 2024Q1

REPORT INFORMATION
  Report Type: Other
  Country: AU (occurrence: None)
  Receive Date: 20240102
  Receipt Date: 20240102
  Transmission Date: 20240410
  Serious: Yes (Other)
  Sender: FDA-Public Use
  Company Number: AU-ROCHE-3483434

PATIENT

DRUGS (1)
  1. TRASTUZUMAB [Suspect]
     Active Substance: TRASTUZUMAB
     Indication: HER2 positive breast cancer
     Route: 065

REACTIONS (5)
  - Febrile neutropenia [Unknown]
  - Cardiotoxicity [Unknown]
  - Neuropathy peripheral [Unknown]
  - Diverticular perforation [Unknown]
  - Rectal perforation [Unknown]
